FAERS Safety Report 8809208 (Version 1)
Quarter: 2012Q4

REPORT INFORMATION
  Report Type: Spontaneous
  Country: JP (occurrence: None)
  Receive Date: 20120920
  Receipt Date: 20120920
  Transmission Date: 20130627
  Serious: Yes (Death)
  Sender: FDA-Public Use
  Company Number: PNIS20120024

PATIENT
  Age: 48 Year
  Sex: Male

DRUGS (3)
  1. PREDNISOLONE [Suspect]
  2. TACROLIMUS [Suspect]
  3. MYCOPHENOLATE MOFETIL [Suspect]

REACTIONS (13)
  - Aspartate aminotransferase increased [None]
  - Alanine aminotransferase increased [None]
  - Gamma-glutamyltransferase increased [None]
  - Blood alkaline phosphatase increased [None]
  - Bile duct obstruction [None]
  - Metastases to peritoneum [None]
  - Adenocarcinoma pancreas [None]
  - Jaundice cholestatic [None]
  - Decreased appetite [None]
  - Rash [None]
  - Pigmentation disorder [None]
  - Cholangitis [None]
  - Malignant ascites [None]
